FAERS Safety Report 10269725 (Version 2)
Quarter: 2014Q2

REPORT INFORMATION
  Report Type: Spontaneous
  Country: US (occurrence: None)
  Receive Date: 20140623
  Receipt Date: 20140627
  Transmission Date: 20141212
  Serious: Yes (Other)
  Sender: FDA-Public Use
  Company Number: 003-191

PATIENT
  Age: 05 Year
  Sex: Male

DRUGS (1)
  1. CROFAB [Suspect]
     Indication: SNAKE BITE
     Dosage: 10 VIALS TOTAL
     Dates: start: 201406, end: 201406

REACTIONS (2)
  - Discomfort [None]
  - Compartment syndrome [None]
